FAERS Safety Report 5043880-1 (Version None)
Quarter: 2006Q3

REPORT INFORMATION
  Report Type: 
  Country: None (occurrence: None)
  Receive Date: 20060706
  Receipt Date: 20060630
  Transmission Date: 20061208
  Serious: Yes (Hospitalization)
  Sender: FDA-Public Use
  Company Number: GB-BRISTOL-MYERS SQUIBB COMPANY-13430210

PATIENT
  Age: 4 Decade
  Sex: Male

DRUGS (3)
  1. SUSTIVA [Suspect]
  2. KIVEXA [Concomitant]
     Dosage: ABACAVIR 600MG / LAMIVUDINE 300 MG
  3. SEPTRIN [Concomitant]
     Indication: INFECTION PROPHYLAXIS

REACTIONS (3)
  - HYPOTENSION [None]
  - OXYGEN SATURATION DECREASED [None]
  - PYREXIA [None]
